FAERS Safety Report 8464549-7 (Version None)
Quarter: 2012Q2

REPORT INFORMATION
  Report Type: 
  Country: None (occurrence: None)
  Receive Date: 20120626
  Receipt Date: 20120618
  Transmission Date: 20120825
  Serious: Yes (Other)
  Sender: FDA-Public Use
  Company Number: US-BRISTOL-MYERS SQUIBB COMPANY-16606626

PATIENT
  Age: 69 Year
  Sex: Male
  Weight: 89 kg

DRUGS (1)
  1. ORENCIA [Suspect]
     Indication: RHEUMATOID ARTHRITIS
     Dosage: NO OF TREATMENTS-65.1DF=4 VIALS.LAST INF-18APR12,INTD,RESTD
     Route: 042

REACTIONS (3)
  - WEIGHT DECREASED [None]
  - AORTIC ANEURYSM [None]
  - PROSTATIC SPECIFIC ANTIGEN INCREASED [None]
